FAERS Safety Report 25542310 (Version 1)
Quarter: 2025Q3

REPORT INFORMATION
  Report Type: Spontaneous
  Country: EU (occurrence: EU)
  Receive Date: 20250711
  Receipt Date: 20250711
  Transmission Date: 20251021
  Serious: Yes (Other)
  Sender: OXFORD PHARMACEUTICALS, LLC
  Company Number: EU-Oxford Pharmaceuticals, LLC-2180312

PATIENT
  Age: 70 Year
  Sex: Male

DRUGS (1)
  1. PRIMIDONE [Suspect]
     Active Substance: PRIMIDONE
     Indication: Essential tremor

REACTIONS (3)
  - Dupuytren^s contracture [Recovered/Resolved]
  - Complex regional pain syndrome [Recovered/Resolved]
  - Encephalopathy [Recovered/Resolved]
